FAERS Safety Report 13814926 (Version 1)
Quarter: 2017Q3

REPORT INFORMATION
  Report Type: Spontaneous
  Country: CH (occurrence: CH)
  Receive Date: 20170731
  Receipt Date: 20170731
  Transmission Date: 20171127
  Serious: Yes (Hospitalization)
  Sender: FDA-Public Use
  Company Number: CH-TEVA-790099ISR

PATIENT
  Age: 28 Year
  Sex: Male
  Weight: 80.3 kg

DRUGS (5)
  1. VINCRISTINE [Suspect]
     Active Substance: VINCRISTINE
     Dosage: FORM OF ADMIN. UNSPECIFIED
     Route: 042
     Dates: start: 20170120, end: 20170120
  2. ACTINOMYCIN D [Suspect]
     Active Substance: DACTINOMYCIN
     Dosage: FORM OF ADMIN. UNSPECIFIED
     Route: 042
     Dates: start: 20170120, end: 20170120
  3. CO-AMOXI [Suspect]
     Active Substance: AMOXICILLIN\CLAVULANATE POTASSIUM
     Dosage: 4000 MILLIGRAM DAILY; FORM OF ADMIN. UNSPECIFIED
     Route: 048
     Dates: start: 20170203
  4. IFOSFAMIDE. [Suspect]
     Active Substance: IFOSFAMIDE
     Dosage: FORM OF ADMIN. UNSPECIFIED
     Route: 042
     Dates: start: 20170120, end: 20170120
  5. CIPROXIN [Suspect]
     Active Substance: CIPROFLOXACIN
     Dosage: 2000 MILLIGRAM DAILY; FILM-COATED TABLETS
     Route: 048
     Dates: start: 20170203

REACTIONS (3)
  - Chills [Recovered/Resolved]
  - Agranulocytosis [Recovered/Resolved]
  - Pyrexia [Recovered/Resolved]

NARRATIVE: CASE EVENT DATE: 20170203
